FAERS Safety Report 5696554-8 (Version None)
Quarter: 2008Q2

REPORT INFORMATION
  Report Type: 
  Country: None (occurrence: None)
  Receive Date: 20080404
  Receipt Date: 20080404
  Transmission Date: 20081010
  Serious: Yes (Life-Threatening, Other)
  Sender: FDA-Public Use
  Company Number: None

PATIENT
  Age: 63 Year
  Sex: Female
  Weight: 77.5651 kg

DRUGS (1)
  1. LISINOPRIL AND HYDROCHLOROTHIAZIDE [Suspect]
     Indication: HYPERTENSION
     Dosage: 1 DAILY  PO
     Route: 048
     Dates: start: 20060201, end: 20061001

REACTIONS (9)
  - BLOOD PRESSURE INCREASED [None]
  - DIZZINESS [None]
  - FALL [None]
  - MALAISE [None]
  - PRURITUS [None]
  - RASH MACULO-PAPULAR [None]
  - SWELLING [None]
  - SWELLING FACE [None]
  - URTICARIA [None]
